FAERS Safety Report 5842548-9 (Version None)
Quarter: 2008Q3

REPORT INFORMATION
  Report Type: 
  Country: None (occurrence: None)
  Receive Date: 20080812
  Receipt Date: 20080801
  Transmission Date: 20090109
  Serious: Yes (Death)
  Sender: FDA-Public Use
  Company Number: GB-PFIZER INC-2008062977

PATIENT

DRUGS (1)
  1. SOMAVERT [Suspect]
     Dosage: DAILY DOSE:20MG

REACTIONS (1)
  - DEATH [None]
